FAERS Safety Report 8942364 (Version 1)
Quarter: 2012Q4

REPORT INFORMATION
  Report Type: Spontaneous
  Country: US (occurrence: None)
  Receive Date: 20121121
  Receipt Date: 20121121
  Transmission Date: 20130627
  Serious: Yes (Death)
  Sender: FDA-Public Use
  Company Number: 2012US-004448

PATIENT
  Age: 66 Year
  Sex: Male
  Weight: 97 kg

DRUGS (12)
  1. OMONTYS (PEGINESATIDE) SOLUTION FOR INJECTION [Suspect]
     Indication: NEPHROGENIC ANAEMIA
     Route: 042
     Dates: start: 20121105, end: 20121105
  2. SOTALOL (SOTALOL) [Concomitant]
  3. AMLODIPINE (AMLODIPINE) [Concomitant]
  4. ASPIRIN (ACETYLSALICYLIC ACID) [Concomitant]
  5. MINOXIDIL (MINOXIDIL) [Concomitant]
  6. FUROSEMIDE (FUROSEMIDE) [Concomitant]
  7. PRILOSEC (OMEPRAZOLE) [Concomitant]
  8. RENVELA (SEVELAMER CARBONATE) [Concomitant]
  9. INSULIN (INSULIN) [Concomitant]
  10. GLIPIZIDE (GLIPIZIDE) [Concomitant]
  11. METOPROLOL (METOPROLOL) [Concomitant]
  12. ZEMPLAR (PARICALCITOL) [Concomitant]

REACTIONS (3)
  - Loss of consciousness [None]
  - Convulsion [None]
  - Dizziness [None]
